FAERS Safety Report 5787040-5 (Version None)
Quarter: 2008Q2

REPORT INFORMATION
  Report Type: 
  Country: None (occurrence: None)
  Receive Date: 20080625
  Receipt Date: 20080612
  Transmission Date: 20081010
  Serious: Yes (Disabling, Other)
  Sender: FDA-Public Use
  Company Number: FI-ELI_LILLY_AND_COMPANY-FI200806002921

PATIENT
  Age: 42 Year
  Sex: Male

DRUGS (2)
  1. ZYPREXA [Suspect]
     Dosage: 10 MG, DAILY (1/D)
     Route: 048
     Dates: start: 20000101, end: 20031009
  2. ZYPREXA [Suspect]
     Dosage: 7.5 MG, DAILY (1/D)
     Route: 048
     Dates: start: 20031010

REACTIONS (5)
  - ACCIDENT [None]
  - EMOTIONAL DISTRESS [None]
  - FEMUR FRACTURE [None]
  - INCREASED APPETITE [None]
  - WEIGHT INCREASED [None]
